FAERS Safety Report 17023278 (Version 2)
Quarter: 2020Q1

REPORT INFORMATION
  Report Type: Spontaneous
  Country: US (occurrence: US)
  Receive Date: 20191112
  Receipt Date: 20200326
  Transmission Date: 20200409
  Serious: No
  Sender: FDA-Public Use
  Company Number: US-ASTRAZENECA-2019SF57817

PATIENT
  Age: 1940 Day
  Sex: Female

DRUGS (1)
  1. SYNAGIS [Suspect]
     Active Substance: PALIVIZUMAB
     Dosage: 15.0MG/KG UNKNOWN
     Route: 030
     Dates: start: 2014

REACTIONS (2)
  - Dependence on respirator [Unknown]
  - Off label use [Unknown]

NARRATIVE: CASE EVENT DATE: 20191101
